FAERS Safety Report 6374469-X (Version None)
Quarter: 2009Q3

REPORT INFORMATION
  Report Type: 
  Country: None (occurrence: None)
  Receive Date: 20090921
  Receipt Date: 20090910
  Transmission Date: 20100115
  Serious: Yes (Other)
  Sender: FDA-Public Use
  Company Number: 2009AP002947

PATIENT
  Age: 62 Year
  Sex: Female

DRUGS (3)
  1. TRAMADOL HYDROCHLORIDE [Suspect]
     Indication: BURSITIS
     Dosage: 50 MG; TID; PO
     Route: 048
     Dates: start: 20090401, end: 20090708
  2. LISINOPRIL [Concomitant]
  3. INSULIN [Concomitant]

REACTIONS (5)
  - BALANCE DISORDER [None]
  - CONSTIPATION [None]
  - ERUCTATION [None]
  - NAUSEA [None]
  - VOMITING [None]
